FAERS Safety Report 8958650 (Version 1)
Quarter: 2012Q4

REPORT INFORMATION
  Report Type: Spontaneous
  Country: US (occurrence: None)
  Receive Date: 20121206
  Receipt Date: 20121206
  Transmission Date: 20130627
  Serious: Yes (Disabling)
  Sender: FDA-Public Use
  Company Number: None

PATIENT
  Age: 8 Year
  Sex: Male
  Weight: 27.67 kg

DRUGS (1)
  1. RISPERIDONE [Suspect]
     Indication: AUTISM

REACTIONS (3)
  - Seizure like phenomena [None]
  - Eye movement disorder [None]
  - Tic [None]
